FAERS Safety Report 8151978-4 (Version None)
Quarter: 2012Q1

REPORT INFORMATION
  Report Type: 
  Country: None (occurrence: None)
  Receive Date: 20120221
  Receipt Date: 20120218
  Transmission Date: 20120608
  Serious: No
  Sender: FDA-Public Use
  Company Number: US-PFIZER INC-2012043774

PATIENT
  Sex: Female

DRUGS (1)
  1. PREMARIN [Suspect]
     Dosage: UNK, 2X/DAY
     Route: 067
     Dates: start: 20120215

REACTIONS (2)
  - ABDOMINAL PAIN UPPER [None]
  - BURNING SENSATION [None]
